FAERS Safety Report 11737244 (Version 1)
Quarter: 2015Q4

REPORT INFORMATION
  Report Type: Spontaneous
  Country: KR (occurrence: KR)
  Receive Date: 20151113
  Receipt Date: 20151113
  Transmission Date: 20160304
  Serious: Yes (Death)
  Sender: FDA-Public Use
  Company Number: KR-ASTRAZENECA-2014SE23957

PATIENT
  Age: 49 Year
  Sex: Male

DRUGS (2)
  1. GEFITINIB [Suspect]
     Active Substance: GEFITINIB
     Indication: LUNG ADENOCARCINOMA METASTATIC
     Route: 048
  2. RADIOTHERAPY [Concomitant]
     Active Substance: RADIATION THERAPY
     Route: 065

REACTIONS (1)
  - Bronchopulmonary aspergillosis [Fatal]
